FAERS Safety Report 5813325-X (Version None)
Quarter: 2008Q3

REPORT INFORMATION
  Report Type: 
  Country: None (occurrence: None)
  Receive Date: 20080711
  Receipt Date: 20080708
  Transmission Date: 20090109
  Serious: Yes (Death)
  Sender: FDA-Public Use
  Company Number: S08-USA-02339-01

PATIENT
  Age: 21 Year
  Sex: Male

DRUGS (1)
  1. LEXAPRO [Suspect]
     Dates: start: 20050606, end: 20050629

REACTIONS (3)
  - COMPLETED SUICIDE [None]
  - GUN SHOT WOUND [None]
  - HEAD INJURY [None]
